FAERS Safety Report 16269135 (Version 4)
Quarter: 2019Q2

REPORT INFORMATION
  Report Type: Report from Study
  Country: BE (occurrence: BE)
  Receive Date: 20190503
  Receipt Date: 20190529
  Transmission Date: 20190711
  Serious: Yes (Hospitalization)
  Sender: FDA-Public Use
  Company Number: BE-ROCHE-2306474

PATIENT
  Age: 58 Year
  Sex: Female
  Weight: 57.2 kg

DRUGS (19)
  1. PANTOPRAZOLE [Concomitant]
     Active Substance: PANTOPRAZOLE
     Route: 065
     Dates: start: 20190305
  2. DAFALGAN [Concomitant]
     Active Substance: ACETAMINOPHEN
     Indication: CHEST PAIN
     Route: 048
     Dates: start: 20190418, end: 20190418
  3. DENTIO [Concomitant]
     Indication: PERIODONTAL DISEASE
     Route: 065
     Dates: start: 201809
  4. PARACETAMOL [Concomitant]
     Active Substance: ACETAMINOPHEN
     Indication: PYREXIA
     Route: 065
     Dates: start: 20190415, end: 20190415
  5. PARACETAMOL [Concomitant]
     Active Substance: ACETAMINOPHEN
     Route: 065
     Dates: start: 20190416
  6. NIQUITIN [Concomitant]
     Active Substance: NICOTINE
     Route: 065
     Dates: start: 201811, end: 20190415
  7. TAVEGYL [Concomitant]
     Active Substance: CLEMASTINE FUMARATE
     Dosage: 2 MG/ 2 ML
     Route: 042
     Dates: start: 20190506, end: 20190506
  8. DICLOFENAC [Concomitant]
     Active Substance: DICLOFENAC
     Indication: PYREXIA
     Route: 065
     Dates: start: 20190416
  9. MOVICOL [Concomitant]
     Active Substance: POLYETHYLENE GLYCOL 3350\POTASSIUM CHLORIDE\SODIUM BICARBONATE\SODIUM CHLORIDE
     Indication: CONSTIPATION
     Route: 065
     Dates: start: 201809
  10. NIQUITIN [Concomitant]
     Active Substance: NICOTINE
     Route: 065
     Dates: start: 20190416
  11. ATEZOLIZUMAB. [Suspect]
     Active Substance: ATEZOLIZUMAB
     Indication: OESOPHAGEAL SQUAMOUS CELL CARCINOMA
     Dosage: MOST RECENT DOSE AT 11.20
     Route: 042
     Dates: start: 20190415
  12. ZANTAC [Concomitant]
     Active Substance: RANITIDINE HYDROCHLORIDE
     Indication: PREMEDICATION
     Route: 042
     Dates: start: 20190506, end: 20190506
  13. RO6874281 (FAP IL2V MAB) [Suspect]
     Active Substance: RO-6874281
     Indication: OESOPHAGEAL SQUAMOUS CELL CARCINOMA
     Dosage: MOST RECENT DOSE AT 14.27
     Route: 042
     Dates: start: 20190415
  14. PARACETAMOL [Concomitant]
     Active Substance: ACETAMINOPHEN
     Route: 042
     Dates: start: 20190506, end: 20190506
  15. OMEPRAZOLE. [Concomitant]
     Active Substance: OMEPRAZOLE
     Route: 065
     Dates: start: 20190418, end: 20190418
  16. PARACETAMOL [Concomitant]
     Active Substance: ACETAMINOPHEN
     Indication: CHEST PAIN
     Route: 065
     Dates: start: 201809, end: 20190228
  17. PARACETAMOL [Concomitant]
     Active Substance: ACETAMINOPHEN
     Route: 065
     Dates: start: 20190301
  18. TAVEGYL [Concomitant]
     Active Substance: CLEMASTINE FUMARATE
     Indication: PREMEDICATION
     Dosage: 2 MG/ 2 ML
     Route: 042
     Dates: start: 20190415, end: 20190415
  19. LITICAN [ALIZAPRIDE HYDROCHLORIDE] [Concomitant]
     Indication: PREMEDICATION
     Route: 042
     Dates: start: 20190506, end: 20190506

REACTIONS (3)
  - Aspartate aminotransferase increased [Recovered/Resolved]
  - Acute kidney injury [Recovered/Resolved]
  - Alanine aminotransferase increased [Recovered/Resolved]

NARRATIVE: CASE EVENT DATE: 20190417
